FAERS Safety Report 9262893 (Version 1)
Quarter: 2013Q2

REPORT INFORMATION
  Report Type: Spontaneous
  Country: US (occurrence: US)
  Receive Date: 20130430
  Receipt Date: 20130430
  Transmission Date: 20140414
  Serious: Yes (Other)
  Sender: FDA-Public Use
  Company Number: US-BAYER-2013-053632

PATIENT
  Age: 24 Year
  Sex: Female

DRUGS (12)
  1. YASMIN [Suspect]
     Dosage: UNK UNK, QD
  2. ALEVE [Concomitant]
     Dosage: 200 MG, PRN
     Dates: start: 20071028
  3. BACTRIM [Concomitant]
     Dosage: UNK UNK, BID
     Dates: start: 20071028
  4. IBUPROFEN [Concomitant]
     Dosage: 600 MG, TWO OR THREE TIMES DAILY
     Dates: start: 20071028
  5. BENADRYL [Concomitant]
     Dosage: UNK
     Dates: start: 20071107
  6. KEFLEX [Concomitant]
     Dosage: 500 MG, QID
     Dates: start: 20071030, end: 200711
  7. MULTIVITAMIN [Concomitant]
     Dosage: UNK
     Dates: start: 20071112
  8. DICLOXACILLIN [Concomitant]
     Dosage: UNK
     Dates: start: 20071112
  9. CLINDAMYCIN [Concomitant]
     Dosage: 600 MG, UNK
     Route: 042
     Dates: start: 20071030
  10. CLINDAMYCIN [Concomitant]
     Dosage: 600 MG, UNK
     Route: 030
     Dates: start: 20071114
  11. DOXYCYCLINE [Concomitant]
     Dosage: UNK
     Dates: start: 20071114
  12. CLEOCIN [Concomitant]
     Dosage: 150 MG, QID
     Route: 048
     Dates: start: 20071114

REACTIONS (2)
  - Deep vein thrombosis [Recovering/Resolving]
  - Thrombophlebitis superficial [Recovering/Resolving]
